FAERS Safety Report 19780740 (Version 6)
Quarter: 2022Q1

REPORT INFORMATION
  Report Type: Spontaneous
  Country: DE (occurrence: DE)
  Receive Date: 20210902
  Receipt Date: 20220224
  Transmission Date: 20220423
  Serious: Yes (Hospitalization, Other)
  Sender: FDA-Public Use
  Company Number: None

PATIENT
  Age: 23 Year
  Sex: Male
  Weight: 88 kg

DRUGS (3)
  1. PROPECIA [Suspect]
     Active Substance: FINASTERIDE
     Indication: Androgenetic alopecia
     Dosage: 1 MILLIGRAM, QD
     Route: 048
     Dates: start: 20060912, end: 20091028
  2. PROPECIA [Suspect]
     Active Substance: FINASTERIDE
     Indication: Alopecia
     Dosage: 1 MILLIGRAM, QD
     Route: 048
     Dates: start: 20100830, end: 201101
  3. PROPECIA [Suspect]
     Active Substance: FINASTERIDE
     Dosage: 1 MILLIGRAM,QD (2 MONTHS)
     Route: 048
     Dates: start: 2012

REACTIONS (26)
  - Post 5-alpha-reductase inhibitor syndrome [Not Recovered/Not Resolved]
  - Migraine with aura [Unknown]
  - Paraesthesia [Unknown]
  - Hypoaesthesia [Unknown]
  - Transient ischaemic attack [Unknown]
  - Erectile dysfunction [Unknown]
  - Testicular pain [Not Recovered/Not Resolved]
  - Melanocytic naevus [Unknown]
  - Hypertension [Unknown]
  - Nausea [Unknown]
  - Fungal infection [Unknown]
  - Trichophytosis [Unknown]
  - Headache [Unknown]
  - Sleep apnoea syndrome [Unknown]
  - Depression [Unknown]
  - Libido decreased [Not Recovered/Not Resolved]
  - Social avoidant behaviour [Unknown]
  - Disturbance in attention [Unknown]
  - Anhedonia [Unknown]
  - Anxiety [Unknown]
  - Terminal insomnia [Unknown]
  - Restlessness [Unknown]
  - Hypogonadism [Unknown]
  - Sleep disorder [Unknown]
  - Loss of libido [Unknown]
  - Vitamin D deficiency [Unknown]

NARRATIVE: CASE EVENT DATE: 20100101
